FAERS Safety Report 9353625 (Version 1)
Quarter: 2013Q2

REPORT INFORMATION
  Report Type: Spontaneous
  Country: US (occurrence: None)
  Receive Date: 20130617
  Receipt Date: 20130617
  Transmission Date: 20140414
  Serious: No
  Sender: FDA-Public Use
  Company Number: None

PATIENT
  Age: 24 Year
  Sex: Male
  Weight: 83.92 kg

DRUGS (1)
  1. METHYLPHENIDATE ER [Suspect]
     Indication: ATTENTION DEFICIT/HYPERACTIVITY DISORDER
     Dosage: 30, 1 TABLET EVERYDAY, PO
     Route: 048
     Dates: start: 20130521, end: 20130604

REACTIONS (3)
  - Drug ineffective [None]
  - Fatigue [None]
  - Attention deficit/hyperactivity disorder [None]
